FAERS Safety Report 11068270 (Version 1)
Quarter: 2015Q2

REPORT INFORMATION
  Report Type: Spontaneous
  Country: US (occurrence: None)
  Receive Date: 20150424
  Receipt Date: 20150424
  Transmission Date: 20150821
  Serious: No
  Sender: FDA-Public Use
  Company Number: None

PATIENT
  Age: 55 Year
  Sex: Female
  Weight: 172 kg

DRUGS (2)
  1. BUPROPION HCL 75 MG [Suspect]
     Active Substance: BUPROPION HYDROCHLORIDE
     Indication: APATHY
     Dosage: 1 PILL
     Route: 048
  2. BUPROPION HCL 75 MG [Suspect]
     Active Substance: BUPROPION HYDROCHLORIDE
     Indication: DEPRESSION
     Dosage: 1 PILL
     Route: 048

REACTIONS (3)
  - Abnormal sleep-related event [None]
  - Sleep talking [None]
  - Abnormal dreams [None]

NARRATIVE: CASE EVENT DATE: 20150421
